FAERS Safety Report 7367221-X (Version None)
Quarter: 2011Q1

REPORT INFORMATION
  Report Type: 
  Country: None (occurrence: None)
  Receive Date: 20110322
  Receipt Date: 20110311
  Transmission Date: 20110831
  Serious: Yes (Death, Other)
  Sender: FDA-Public Use
  Company Number: US-PFIZER INC-2005111503

PATIENT
  Sex: Male

DRUGS (1)
  1. NEURONTIN [Suspect]
     Indication: PAIN
     Route: 048
     Dates: start: 20040623, end: 20041014

REACTIONS (4)
  - SUICIDAL IDEATION [None]
  - DEPRESSED MOOD [None]
  - COMPLETED SUICIDE [None]
  - DRUG INEFFECTIVE [None]
